FAERS Safety Report 8714083 (Version 4)
Quarter: 2012Q4

REPORT INFORMATION
  Report Type: 
  Country: JP (occurrence: JP)
  Receive Date: 20120808
  Receipt Date: 20121101
  Transmission Date: 20130627
  Serious: Yes (Other)
  Sender: FDA-Public Use
  Company Number: JP-AMGEN-JPNSP2012048744

PATIENT
  Age: 60 Year
  Sex: Female

DRUGS (2)
  1. ARANESP [Suspect]
     Indication: NEPHROGENIC ANAEMIA
     Dosage: UNK
     Route: 040
     Dates: start: 201003
  2. L CARTIN [Concomitant]
     Route: 048

REACTIONS (2)
  - Drug ineffective [Unknown]
  - Aplasia pure red cell [Unknown]
